FAERS Safety Report 4728342-0 (Version None)
Quarter: 2005Q3

REPORT INFORMATION
  Report Type: 
  Country: None (occurrence: None)
  Receive Date: 20050729
  Receipt Date: 20050602
  Transmission Date: 20060218
  Serious: Yes (Other)
  Sender: FDA-Public Use
  Company Number: DE-BRISTOL-MYERS SQUIBB COMPANY-12992434

PATIENT
  Age: 23 Year
  Sex: Female
  Weight: 94 kg

DRUGS (4)
  1. ABILIFY [Suspect]
     Indication: SCHIZOPHRENIA
     Route: 048
     Dates: start: 20050408
  2. AMISULPRIDE [Concomitant]
     Indication: SCHIZOPHRENIA
     Dates: end: 20050407
  3. QUETIAPINE [Concomitant]
     Indication: SCHIZOPHRENIA
     Dates: start: 20050406
  4. DULOXETINE HCL [Concomitant]
     Indication: ANXIETY
     Dates: start: 20050520

REACTIONS (1)
  - BLOOD PRESSURE INCREASED [None]
